FAERS Safety Report 8595908-X (Version None)
Quarter: 2012Q3

REPORT INFORMATION
  Report Type: 
  Country: None (occurrence: None)
  Receive Date: 20120815
  Receipt Date: 20120112
  Transmission Date: 20120928
  Serious: Yes (Death, Hospitalization)
  Sender: FDA-Public Use
  Company Number: US-ROCHE-1100725

PATIENT
  Sex: Male

DRUGS (3)
  1. LIDOCAINE [Concomitant]
  2. HEPARIN [Concomitant]
  3. ACTIVASE [Suspect]
     Indication: ACUTE MYOCARDIAL INFARCTION

REACTIONS (2)
  - CARDIO-RESPIRATORY ARREST [None]
  - NO THERAPEUTIC RESPONSE [None]
